FAERS Safety Report 4824980-5 (Version None)
Quarter: 2005Q4

REPORT INFORMATION
  Report Type: 
  Country: None (occurrence: None)
  Receive Date: 20051109
  Receipt Date: 20051109
  Transmission Date: 20060501
  Serious: No
  Sender: FDA-Public Use
  Company Number: None

PATIENT
  Age: 54 Year
  Sex: Male
  Weight: 79.3795 kg

DRUGS (1)
  1. LAMISIL [Suspect]
     Indication: ONYCHOMYCOSIS
     Dosage: 250 MG   DAILY   PO
     Route: 048
     Dates: start: 20050910, end: 20051107

REACTIONS (3)
  - AGEUSIA [None]
  - ANOSMIA [None]
  - WEIGHT DECREASED [None]
